FAERS Safety Report 13121809 (Version 2)
Quarter: 2017Q1

REPORT INFORMATION
  Report Type: Spontaneous
  Country: GB (occurrence: GB)
  Receive Date: 20170117
  Receipt Date: 20170203
  Transmission Date: 20170428
  Serious: Yes (Other)
  Sender: FDA-Public Use
  Company Number: GB-JNJFOC-20170113374

PATIENT
  Age: 88 Year
  Sex: Female

DRUGS (1)
  1. RISPERDAL [Suspect]
     Active Substance: RISPERIDONE
     Indication: DEMENTIA
     Dosage: THE DOSE OF RISPERIDONE WAS 0.5 MG OR 1 MG
     Route: 065

REACTIONS (1)
  - Spinal deformity [Unknown]
